FAERS Safety Report 4424842-1 (Version None)
Quarter: 2004Q3

REPORT INFORMATION
  Report Type: 
  Country: None (occurrence: None)
  Receive Date: 20040812
  Receipt Date: 20040609
  Transmission Date: 20050211
  Serious: Yes (Death, Life-Threatening)
  Sender: FDA-Public Use
  Company Number: DE-MERCK-0406DEU00064

PATIENT
  Age: 68 Year
  Sex: Male

DRUGS (9)
  1. DIGITOXIN [Concomitant]
     Route: 048
  2. ENOXAPARIN SODIUM [Concomitant]
     Indication: THROMBOSIS PROPHYLAXIS
     Route: 058
     Dates: start: 20040531, end: 20040606
  3. FUROSEMIDE [Concomitant]
     Route: 048
  4. INSULIN HUMAN [Concomitant]
     Route: 058
  5. RAMIPRIL [Concomitant]
     Route: 048
  6. VIOXX [Suspect]
     Indication: PAIN
     Route: 048
     Dates: start: 20040531, end: 20040607
  7. SPIRONOLACTONE [Concomitant]
     Route: 065
     Dates: start: 20040607, end: 20040607
  8. THIOCTIC ACID [Concomitant]
     Route: 042
  9. TORSEMIDE [Concomitant]
     Route: 048
     Dates: start: 20040501

REACTIONS (4)
  - CARDIAC FAILURE [None]
  - GAMMOPATHY [None]
  - HEPATIC FAILURE [None]
  - RENAL FAILURE [None]
